FAERS Safety Report 5220488-6 (Version None)
Quarter: 2007Q1

REPORT INFORMATION
  Report Type: 
  Country: None (occurrence: None)
  Receive Date: 20070126
  Receipt Date: 20070116
  Transmission Date: 20070707
  Serious: Yes (Other)
  Sender: FDA-Public Use
  Company Number: SE-JNJFOC-20070103940

PATIENT
  Age: 34 Year
  Sex: Female

DRUGS (2)
  1. REMICADE [Suspect]
     Indication: JUVENILE ARTHRITIS
     Route: 042
  2. AZATHYOPRINE [Concomitant]

REACTIONS (2)
  - PERICARDITIS [None]
  - SYSTEMIC LUPUS ERYTHEMATOSUS [None]
